FAERS Safety Report 6722618-3 (Version None)
Quarter: 2010Q2

REPORT INFORMATION
  Report Type: 
  Country: None (occurrence: None)
  Receive Date: 20100512
  Receipt Date: 20100429
  Transmission Date: 20101027
  Serious: Yes (Death, Other)
  Sender: FDA-Public Use
  Company Number: ES-GENENTECH-301492

PATIENT
  Age: 77 Year
  Sex: Female

DRUGS (4)
  1. RITUXIMAB [Suspect]
     Indication: PARANEOPLASTIC PEMPHIGUS
     Dosage: 375 MG/M2, 1/WEEK
     Route: 065
     Dates: start: 20011101
  2. METHYLPREDNISOLONE 4MG TAB [Concomitant]
     Indication: PARANEOPLASTIC PEMPHIGUS
     Dosage: UNK
  3. CYCLOSPORINE [Concomitant]
     Indication: PARANEOPLASTIC PEMPHIGUS
     Dosage: UNK
     Route: 048
  4. PREDNISONE [Concomitant]
     Indication: PARANEOPLASTIC PEMPHIGUS
     Dosage: UNK

REACTIONS (4)
  - DEATH [None]
  - HERPES VIRUS INFECTION [None]
  - LISTERIA SEPSIS [None]
  - MYCOBACTERIUM CHELONEI INFECTION [None]
